FAERS Safety Report 7912971-7 (Version None)
Quarter: 2011Q4

REPORT INFORMATION
  Report Type: 
  Country: None (occurrence: None)
  Receive Date: 20111114
  Receipt Date: 20111104
  Transmission Date: 20120403
  Serious: Yes (Hospitalization, Other)
  Sender: FDA-Public Use
  Company Number: US-BAYER-201036101NA

PATIENT
  Age: 39 Year
  Sex: Female
  Weight: 184.13 kg

DRUGS (15)
  1. REGLAN [Concomitant]
     Dosage: 5 MG, UNK
     Dates: start: 20081125
  2. CITALOPRAM HYDROBROMIDE [Concomitant]
     Dosage: 20 MG, QD
     Route: 048
     Dates: start: 20081125
  3. HUMULIN R [Concomitant]
     Indication: DIABETES MELLITUS
     Dosage: UNK
     Dates: start: 20081125
  4. LORTAB [Concomitant]
     Indication: PAIN
     Dosage: UNK UNK, Q4HR
     Route: 048
     Dates: start: 20081125
  5. IBUPROFEN [Concomitant]
     Dosage: 600 MG, TID
     Route: 048
     Dates: start: 20081125
  6. YASMIN [Suspect]
     Dosage: UNK
     Route: 048
     Dates: start: 20071101
  7. ATARAX [Concomitant]
     Dosage: 50 MG, BID
     Dates: start: 20081125
  8. LISINOPRIL [Concomitant]
     Indication: HYPERTENSION
     Dosage: 10 MG, QD
     Route: 048
     Dates: start: 20081125
  9. LYRICA [Concomitant]
     Dosage: 50 MG, BID
     Route: 048
     Dates: start: 20081125
  10. DROSPIRENONE AND ETHINYL ESTRADIOL [Suspect]
     Dosage: UNK
     Dates: start: 20071101
  11. METFORMIN HCL [Concomitant]
     Indication: DIABETES MELLITUS
     Dosage: 850 MG, BID
     Route: 048
     Dates: start: 20081125
  12. LANTUS [Concomitant]
     Indication: DIABETES MELLITUS
     Dosage: UNK
     Dates: start: 20081125
  13. VYTORIN [Concomitant]
     Dosage: UNK MG, UNK
     Route: 048
     Dates: start: 20081125
  14. ACTOS [Concomitant]
     Indication: DIABETES MELLITUS
     Dosage: 30 MG, QD
     Route: 048
     Dates: start: 20081125
  15. METHOCARBAMOL [Concomitant]
     Dosage: 500 MG, BID
     Route: 048
     Dates: start: 20081125

REACTIONS (13)
  - ABDOMINAL DISTENSION [None]
  - FLATULENCE [None]
  - PAIN [None]
  - DEPRESSION [None]
  - CHOLELITHIASIS [None]
  - CHOLECYSTECTOMY [None]
  - CHOLECYSTITIS ACUTE [None]
  - SCAR [None]
  - ANXIETY [None]
  - DIARRHOEA [None]
  - DYSPEPSIA [None]
  - CONSTIPATION [None]
  - CHOLECYSTITIS CHRONIC [None]
